FAERS Safety Report 21911846 (Version 2)
Quarter: 2023Q2

REPORT INFORMATION
  Report Type: Other
  Country: CA (occurrence: CA)
  Receive Date: 20230125
  Receipt Date: 20230405
  Transmission Date: 20230721
  Serious: Yes (Other)
  Sender: FDA-Public Use
  Company Number: CA-INTERCEPT-PM2021002481

PATIENT
  Age: 61 Year
  Sex: Female

DRUGS (4)
  1. OCALIVA [Interacting]
     Active Substance: OBETICHOLIC ACID
     Indication: Primary biliary cholangitis
     Dosage: 5 MILLIGRAM, QD
     Route: 048
     Dates: start: 20201120, end: 20210816
  2. WARFARIN [Interacting]
     Active Substance: WARFARIN
     Indication: Product used for unknown indication
     Dosage: 1 MG, TID
  3. URSODIOL [Concomitant]
     Active Substance: URSODIOL
     Dosage: 500 MG, QD
     Dates: end: 202108
  4. FRAGMIN [Concomitant]
     Active Substance: DALTEPARIN SODIUM
     Dosage: UNK

REACTIONS (17)
  - Diverticulitis [Unknown]
  - Weight increased [Recovering/Resolving]
  - Drug interaction [Not Recovered/Not Resolved]
  - Dysphonia [Not Recovered/Not Resolved]
  - Lymphadenectomy [Unknown]
  - Abdominal distension [Not Recovered/Not Resolved]
  - Pain in extremity [Recovered/Resolved]
  - Lymphadenopathy [Unknown]
  - Illness [Unknown]
  - COVID-19 [Unknown]
  - Cough [Unknown]
  - Arthralgia [Not Recovered/Not Resolved]
  - Peripheral swelling [Recovered/Resolved]
  - Constipation [Not Recovered/Not Resolved]
  - Fatigue [Unknown]
  - Insurance issue [Not Recovered/Not Resolved]
  - Therapy interrupted [Not Recovered/Not Resolved]

NARRATIVE: CASE EVENT DATE: 20210816
